FAERS Safety Report 16773446 (Version 2)
Quarter: 2019Q3

REPORT INFORMATION
  Report Type: Spontaneous
  Country: US (occurrence: US)
  Receive Date: 20190904
  Receipt Date: 20190926
  Transmission Date: 20191005
  Serious: Yes (Other)
  Sender: FDA-Public Use
  Company Number: US-PFIZER INC-2019378596

PATIENT
  Age: 33 Year
  Sex: Female
  Weight: 68.27 kg

DRUGS (3)
  1. XANAX [Suspect]
     Active Substance: ALPRAZOLAM
     Indication: ANXIETY
     Dosage: 10 MG, 3X/DAY
     Dates: start: 2012
  2. XANAX [Suspect]
     Active Substance: ALPRAZOLAM
     Indication: PANIC DISORDER
     Dosage: 3 MG, UNK
     Dates: start: 2009
  3. XANAX [Suspect]
     Active Substance: ALPRAZOLAM
     Indication: GENERALISED ANXIETY DISORDER

REACTIONS (4)
  - Withdrawal syndrome [Unknown]
  - Drug abuse [Unknown]
  - Suicidal ideation [Not Recovered/Not Resolved]
  - Bipolar I disorder [Unknown]

NARRATIVE: CASE EVENT DATE: 201408
